FAERS Safety Report 9565138 (Version 2)
Quarter: 2013Q4

REPORT INFORMATION
  Report Type: Report from Study
  Country: US (occurrence: US)
  Receive Date: 20130930
  Receipt Date: 20131009
  Transmission Date: 20140711
  Serious: Yes (Death)
  Sender: FDA-Public Use
  Company Number: PHEH2013US020290

PATIENT
  Sex: Female
  Weight: 53.9 kg

DRUGS (1)
  1. TOBI [Suspect]
     Indication: CYSTIC FIBROSIS
     Dosage: 300 MG, BID

REACTIONS (2)
  - Infective pulmonary exacerbation of cystic fibrosis [Fatal]
  - Respiratory failure [Fatal]
